FAERS Safety Report 9659691 (Version 3)
Quarter: 2013Q4

REPORT INFORMATION
  Report Type: Report from Study
  Country: US (occurrence: US)
  Receive Date: 20131031
  Receipt Date: 20131129
  Transmission Date: 20140711
  Serious: Yes (Hospitalization)
  Sender: FDA-Public Use
  Company Number: US-JNJFOC-20131015571

PATIENT
  Age: 16 Year
  Sex: Female
  Weight: 57.1 kg

DRUGS (7)
  1. REMICADE [Suspect]
     Indication: COLITIS ULCERATIVE
     Route: 042
     Dates: start: 20110317
  2. REMICADE [Suspect]
     Indication: COLITIS ULCERATIVE
     Route: 042
     Dates: start: 201210
  3. HUMIRA [Concomitant]
     Indication: COLITIS ULCERATIVE
     Route: 065
  4. MIRALAX [Concomitant]
     Route: 065
  5. 5-ASA [Concomitant]
     Indication: COLITIS ULCERATIVE
     Route: 048
  6. 5-ASA [Concomitant]
     Indication: COLITIS ULCERATIVE
     Route: 054
  7. OMEPRAZOLE [Concomitant]
     Route: 065

REACTIONS (1)
  - Colitis ulcerative [Recovered/Resolved]
